FAERS Safety Report 9930696 (Version 1)
Quarter: 2014Q1

REPORT INFORMATION
  Report Type: Spontaneous
  Country: US (occurrence: US)
  Receive Date: 20140227
  Receipt Date: 20140227
  Transmission Date: 20141002
  Serious: No
  Sender: FDA-Public Use
  Company Number: US-AMGEN-USASP2014000605

PATIENT
  Age: 53 Year
  Sex: Female
  Weight: 63.49 kg

DRUGS (10)
  1. ENBREL [Suspect]
     Indication: PRODUCT USED FOR UNKNOWN INDICATION
     Dosage: 50 MG, QWK
     Route: 058
  2. PLAQUENIL                          /00072602/ [Concomitant]
     Dosage: 200 MG, UNK
  3. BENADRYL                           /00000402/ [Concomitant]
     Dosage: 25 MG, UNK
  4. ASPIRIN [Concomitant]
     Dosage: 81 MG, UNK
  5. FISH OIL                           /00492901/ [Concomitant]
     Dosage: UNK
  6. FLAXSEED OIL [Concomitant]
     Dosage: UNK
  7. GLUCOSAMINE [Concomitant]
     Dosage: 750 MG, UNK
  8. VITAMIN D3 [Concomitant]
     Dosage: 5000 UNIT, UNK
  9. LUTEIN                             /06447201/ [Concomitant]
     Dosage: 15-0.7 MG, UNK
  10. BIOTIN [Concomitant]
     Dosage: 5 MG, UNK

REACTIONS (3)
  - Pruritus [Unknown]
  - Pain [Unknown]
  - Injection site urticaria [Unknown]
